FAERS Safety Report 4823013-4 (Version None)
Quarter: 2005Q4

REPORT INFORMATION
  Report Type: 
  Country: None (occurrence: None)
  Receive Date: 20051104
  Receipt Date: 20051021
  Transmission Date: 20060501
  Serious: Yes (Hospitalization)
  Sender: FDA-Public Use
  Company Number: 2005S1010345

PATIENT
  Age: 27 Year
  Sex: Female
  Weight: 49.8957 kg

DRUGS (9)
  1. FENTANYL [Suspect]
     Indication: ARTHRALGIA
     Dosage: 50 MCG/HR;Q3D;TDER
     Route: 062
     Dates: start: 20050201
  2. FENTANYL [Suspect]
     Indication: BACK PAIN
     Dosage: 50 MCG/HR;Q3D;TDER
     Route: 062
     Dates: start: 20050201
  3. FENTANYL [Suspect]
     Indication: OSTEOARTHRITIS
     Dosage: 50 MCG/HR;Q3D;TDER
     Route: 062
     Dates: start: 20050201
  4. DURAGESIC-100 [Suspect]
     Indication: ARTHRALGIA
     Dosage: 25 MCG/HR;Q3D;TDER
     Route: 062
     Dates: start: 20040601, end: 20040701
  5. DURAGESIC-100 [Suspect]
     Indication: BACK PAIN
     Dosage: 25 MCG/HR;Q3D;TDER
     Route: 062
     Dates: start: 20040601, end: 20040701
  6. DURAGESIC-100 [Suspect]
     Indication: OSTEOARTHRITIS
     Dosage: 25 MCG/HR;Q3D;TDER
     Route: 062
     Dates: start: 20040601, end: 20040701
  7. FENTANYL [Suspect]
     Indication: OSTEOARTHRITIS
     Dosage: 50 MCG/HR;Q3D;TDER
     Route: 062
     Dates: start: 20050201
  8. PANTOPRAZOLE [Concomitant]
     Indication: ARTHRALGIA
  9. PANTOPRAZOLE [Concomitant]
     Indication: BACK PAIN

REACTIONS (5)
  - DEHYDRATION [None]
  - DIARRHOEA [None]
  - INADEQUATE ANALGESIA [None]
  - IRRITABLE BOWEL SYNDROME [None]
  - NAUSEA [None]
